FAERS Safety Report 5949372-7 (Version None)
Quarter: 2008Q4

REPORT INFORMATION
  Report Type: 
  Country: None (occurrence: None)
  Receive Date: 20081112
  Receipt Date: 20081029
  Transmission Date: 20090506
  Serious: Yes (Hospitalization)
  Sender: FDA-Public Use
  Company Number: PHHY2008US15758

PATIENT
  Sex: Male
  Weight: 89 kg

DRUGS (1)
  1. EXJADE [Suspect]
     Dosage: 1500 MG, QD
     Route: 048
     Dates: start: 20080207, end: 20080725

REACTIONS (1)
  - GASTROINTESTINAL HAEMORRHAGE [None]
